FAERS Safety Report 12099977 (Version 1)
Quarter: 2016Q1

REPORT INFORMATION
  Report Type: Spontaneous
  Country: US (occurrence: None)
  Receive Date: 20160219
  Receipt Date: 20160219
  Transmission Date: 20160526
  Serious: No
  Sender: FDA-Public Use
  Company Number: None

PATIENT
  Age: 48 Year
  Sex: Female
  Weight: 68.04 kg

DRUGS (1)
  1. DEXTROAMPAMPHET ER 20MG ACTAVIA [Suspect]
     Active Substance: AMPHETAMINE SULFATE\DEXTROAMPHETAMINE
     Route: 048

REACTIONS (3)
  - Irritability [None]
  - Drug ineffective [None]
  - Dry mouth [None]

NARRATIVE: CASE EVENT DATE: 20160208
